FAERS Safety Report 6837620-0 (Version None)
Quarter: 2010Q3

REPORT INFORMATION
  Report Type: 
  Country: None (occurrence: None)
  Receive Date: 20100709
  Receipt Date: 20100623
  Transmission Date: 20110219
  Serious: Yes (Death)
  Sender: FDA-Public Use
  Company Number: FKO201000254

PATIENT
  Age: 56 Year
  Sex: Female

DRUGS (4)
  1. IFOSFAMIDE (MANUFACTURER UNKNOWN) (IFOSFAMIDE) (IFOSFAMIDE) [Suspect]
     Indication: NON-HODGKIN'S LYMPHOMA
     Dates: start: 20040101, end: 20040101
  2. CARBOPLATIN [Suspect]
     Indication: NON-HODGKIN'S LYMPHOMA
     Dates: start: 20040101, end: 20060101
  3. ETOPOSIDE [Suspect]
     Indication: NON-HODGKIN'S LYMPHOMA
     Dates: start: 20040101, end: 20060101
  4. RITUXIMAB [Concomitant]

REACTIONS (9)
  - ACUTE HEPATIC FAILURE [None]
  - COMA HEPATIC [None]
  - DISEASE RECURRENCE [None]
  - HEPATIC ENCEPHALOPATHY [None]
  - HEPATIC FIBROSIS [None]
  - HEPATITIS B [None]
  - HEPATITIS CHOLESTATIC [None]
  - RENAL FAILURE [None]
  - VARICES OESOPHAGEAL [None]
